FAERS Safety Report 21313851 (Version 1)
Quarter: 2022Q3

REPORT INFORMATION
  Report Type: Spontaneous
  Country: DE (occurrence: DE)
  Receive Date: 20220909
  Receipt Date: 20220909
  Transmission Date: 20221026
  Serious: Yes (Death)
  Sender: FDA-Public Use
  Company Number: DE-DCGMA-22199291

PATIENT
  Age: 62 Year
  Sex: Male
  Weight: 95 kg

DRUGS (1)
  1. PROPOFOL [Suspect]
     Active Substance: PROPOFOL
     Indication: Sedation
     Dosage: 1.5-2 MG/KG/H
     Route: 042
     Dates: start: 20220720, end: 20220804

REACTIONS (2)
  - Rhabdomyolysis [Fatal]
  - Propofol infusion syndrome [Fatal]

NARRATIVE: CASE EVENT DATE: 20220802
